FAERS Safety Report 15558324 (Version 1)
Quarter: 2018Q4

REPORT INFORMATION
  Report Type: Spontaneous
  Country: US (occurrence: US)
  Receive Date: 20181028
  Receipt Date: 20181028
  Transmission Date: 20190205
  Serious: Yes (Hospitalization, Other)
  Sender: FDA-Public Use
  Company Number: US-TEVA-2018-US-967227

PATIENT
  Age: 85 Year
  Sex: Female
  Weight: 77.18 kg

DRUGS (11)
  1. CALCIUM [Concomitant]
     Active Substance: CALCIUM
  2. ZENTAC [Concomitant]
     Dosage: 150 MILLIGRAM DAILY;
  3. BABY ASPIRIN [Concomitant]
     Active Substance: ASPIRIN
     Dosage: 162 MILLIGRAM DAILY;
  4. METOPROLOL. [Concomitant]
     Active Substance: METOPROLOL
     Dosage: 50 MILLIGRAM DAILY;
  5. COSPOT [Concomitant]
     Dosage: OPHTHALMIC
  6. PRAVACHOL [Concomitant]
     Active Substance: PRAVASTATIN SODIUM
     Dosage: 40 MILLIGRAM DAILY;
  7. PRINIVIL [Concomitant]
     Active Substance: LISINOPRIL
     Dosage: 40 MILLIGRAM DAILY;
  8. HYDROCHLORTHIAZIDE [Concomitant]
     Active Substance: HYDROCHLOROTHIAZIDE
     Dosage: 12.5 MILLIGRAM DAILY;
  9. COLACE [Concomitant]
     Active Substance: DOCUSATE SODIUM
     Dosage: 200 MILLIGRAM DAILY;
  10. AZITHROMYCIN ANHYDROUS. [Suspect]
     Active Substance: AZITHROMYCIN ANHYDROUS
     Route: 048
     Dates: start: 20180810
  11. NORVASC [Concomitant]
     Active Substance: AMLODIPINE BESYLATE
     Dosage: 5 MILLIGRAM DAILY;

REACTIONS (14)
  - Essential hypertension [Unknown]
  - Abdominal pain [Unknown]
  - Rectal haemorrhage [Recovered/Resolved]
  - Acquired mixed hyperlipidaemia [Unknown]
  - Cardiac ablation [Unknown]
  - Colitis [Unknown]
  - Drug hypersensitivity [Unknown]
  - Coronary artery disease [Unknown]
  - Hyperkalaemia [Unknown]
  - Hyponatraemia [Unknown]
  - Colitis ischaemic [Unknown]
  - Diarrhoea [Unknown]
  - Atrial fibrillation [Unknown]
  - Diverticulum [Unknown]

NARRATIVE: CASE EVENT DATE: 20180811
